FAERS Safety Report 23827346 (Version 1)
Quarter: 2024Q2

REPORT INFORMATION
  Report Type: Report from Study
  Country: US (occurrence: US)
  Receive Date: 20240507
  Receipt Date: 20240507
  Transmission Date: 20240716
  Serious: Yes (Other)
  Sender: FDA-Public Use
  Company Number: US-IPSEN Group, Research and Development-2024-07553

PATIENT
  Age: 60 Year
  Sex: Female

DRUGS (1)
  1. SOMATULINE DEPOT [Suspect]
     Active Substance: LANREOTIDE ACETATE
     Indication: Carcinoid tumour of the small bowel
     Dosage: INJECTION (DEEP SQ)
     Route: 058
     Dates: start: 20220901

REACTIONS (2)
  - Pancreatic failure [Unknown]
  - Headache [Unknown]

NARRATIVE: CASE EVENT DATE: 20220901
